FAERS Safety Report 7958441-1 (Version None)
Quarter: 2011Q4

REPORT INFORMATION
  Report Type: 
  Country: None (occurrence: None)
  Receive Date: 20111205
  Receipt Date: 20111125
  Transmission Date: 20120403
  Serious: Yes (Hospitalization)
  Sender: FDA-Public Use
  Company Number: JP-ELI_LILLY_AND_COMPANY-JP201104003951

PATIENT
  Age: 83 Year
  Sex: Female

DRUGS (2)
  1. FORTEO [Suspect]
     Dosage: UNK
     Route: 058
     Dates: start: 20110331
  2. FORTEO [Suspect]
     Dosage: UNK
     Route: 058
     Dates: start: 20111122

REACTIONS (4)
  - HOSPITALISATION [None]
  - PAIN [None]
  - MUSCULAR WEAKNESS [None]
  - DIZZINESS [None]
